FAERS Safety Report 9416185 (Version 1)
Quarter: 2013Q3

REPORT INFORMATION
  Report Type: Spontaneous
  Country: US (occurrence: None)
  Receive Date: 20130723
  Receipt Date: 20130723
  Transmission Date: 20140515
  Serious: Yes (Hospitalization)
  Sender: FDA-Public Use
  Company Number: None

PATIENT
  Age: 50 Year
  Sex: Female
  Weight: 69.1 kg

DRUGS (11)
  1. RIBAVIRIN [Suspect]
     Indication: HEPATITIS C
     Route: 048
     Dates: start: 20130425, end: 20130531
  2. PEGASYS [Suspect]
     Indication: HEPATITIS C
     Dates: start: 20130425, end: 20130531
  3. ALBUTEROL EPO [Concomitant]
  4. NEURONTIN [Concomitant]
  5. HYDROXZINE [Concomitant]
  6. LISINOPRIL [Concomitant]
  7. LORATADINE [Concomitant]
  8. MELOXICAM [Concomitant]
  9. METFORMIN [Concomitant]
  10. ZOFRAN [Concomitant]
  11. PAXIL [Concomitant]

REACTIONS (5)
  - Anaemia [None]
  - Renal failure acute [None]
  - Suicidal ideation [None]
  - Treatment noncompliance [None]
  - Activities of daily living impaired [None]
